FAERS Safety Report 9433906 (Version 1)
Quarter: 2013Q3

REPORT INFORMATION
  Report Type: Spontaneous
  Country: TR (occurrence: TR)
  Receive Date: 20130801
  Receipt Date: 20130801
  Transmission Date: 20140515
  Serious: Yes (Hospitalization)
  Sender: FDA-Public Use
  Company Number: PHHY2013TR080378

PATIENT
  Age: 32 Year
  Sex: Female

DRUGS (1)
  1. METHYLPREDNISOLONE [Suspect]
     Indication: MULTIPLE SCLEROSIS
     Dosage: 1 G, QD

REACTIONS (7)
  - Cerebral venous thrombosis [Recovered/Resolved]
  - Intracranial venous sinus thrombosis [Recovered/Resolved]
  - Hypoaesthesia [Recovered/Resolved]
  - Hyperreflexia [Recovered/Resolved]
  - Headache [Recovered/Resolved]
  - Nausea [Recovered/Resolved]
  - Vomiting [Recovered/Resolved]
